FAERS Safety Report 21113804 (Version 3)
Quarter: 2022Q3

REPORT INFORMATION
  Report Type: Spontaneous
  Country: US (occurrence: US)
  Receive Date: 20220721
  Receipt Date: 20220922
  Transmission Date: 20221027
  Serious: No
  Sender: FDA-Public Use
  Company Number: US-VERTEX PHARMACEUTICALS-2022-010620

PATIENT
  Age: 15 Year
  Sex: Male

DRUGS (14)
  1. TRIKAFTA [Suspect]
     Active Substance: ELEXACAFTOR\IVACAFTOR\TEZACAFTOR
     Indication: Cystic fibrosis
     Dosage: 2 ORANGE TABLETS IN THE MORNING AND 1 BLUE TABLET IN THE EVENING
     Route: 048
     Dates: start: 202002
  2. ALBUTEROL [Concomitant]
     Active Substance: ALBUTEROL
     Dosage: 2 PUFFS INTO THE LUNGS, EERY 6 HOURS AS NEEDED
     Dates: start: 20190611
  3. ZITHROMAX [Concomitant]
     Active Substance: AZITHROMYCIN DIHYDRATE
     Dosage: 1 TAB ON MON, WED AND FRI
     Route: 048
     Dates: start: 20220712
  4. AZTREONAM LYSINE [Concomitant]
     Active Substance: AZTREONAM LYSINE
     Dosage: 75 MG/ML,1 AMP 3 TIMES DAILY, EVERY OTHER MONTH
     Dates: start: 20211214
  5. VITAMIN D3 [Concomitant]
     Active Substance: CHOLECALCIFEROL
     Dosage: 1 CAP (50000 UNIT)
     Route: 048
     Dates: start: 20211214
  6. PERIACTIN [Concomitant]
     Active Substance: CYPROHEPTADINE HYDROCHLORIDE
     Dosage: 1 TAB
     Route: 048
     Dates: start: 20211214
  7. FLONASE [Concomitant]
     Active Substance: FLUTICASONE PROPIONATE
     Dosage: 50 MCG/SPRAY, 1 SPRAY IN THE NOSE
     Route: 045
     Dates: start: 20211214
  8. FLOVENT HFA [Concomitant]
     Active Substance: FLUTICASONE PROPIONATE
     Dosage: 44MCG/INHALER, INHALE 2 PUFFS INTO LUNGS
     Dates: start: 20211214
  9. INSULIN GLARGINE [Concomitant]
     Active Substance: INSULIN GLARGINE
     Dosage: 100UNIT/ML (3ML), PEN
     Route: 058
     Dates: start: 20220425
  10. INSULIN NOS [Concomitant]
     Active Substance: INSULIN NOS
     Dosage: GAUGEX5/31 INC PEN, INJECT INTO THE SKIN
     Route: 058
     Dates: start: 20210914
  11. NORDITROPIN [Concomitant]
     Active Substance: SOMATROPIN
     Dosage: (15MG/1.5ML (10MG/ML) 3MG, INTO THE SKIN AT BEDTIME A WEEK
     Route: 058
     Dates: start: 20220412
  12. CREON [Concomitant]
     Active Substance: PANCRELIPASE AMYLASE\PANCRELIPASE LIPASE\PANCRELIPASE PROTEASE
     Dosage: 3 CAPS WITH MEAL AND 2 CAPS WITH SNACKS
     Route: 048
     Dates: start: 20211214
  13. PULMOZYME [Concomitant]
     Active Substance: DORNASE ALFA
     Dosage: INHALE 2.5 MG INTO THE LUNGS
     Dates: start: 20220207
  14. SEMGLEE [Concomitant]
     Dosage: 100 UNIT/ML (3ML)PEN
     Dates: start: 20220621

REACTIONS (4)
  - Blood bilirubin increased [Not Recovered/Not Resolved]
  - Bilirubin conjugated increased [Not Recovered/Not Resolved]
  - Blood albumin increased [Recovering/Resolving]
  - Blood alkaline phosphatase increased [Not Recovered/Not Resolved]

NARRATIVE: CASE EVENT DATE: 20200908
